FAERS Safety Report 7146078-6 (Version None)
Quarter: 2010Q4

REPORT INFORMATION
  Report Type: 
  Country: None (occurrence: None)
  Receive Date: 20101208
  Receipt Date: 20101203
  Transmission Date: 20110411
  Serious: Yes (Other)
  Sender: FDA-Public Use
  Company Number: GB-BRISTOL-MYERS SQUIBB COMPANY-15127764

PATIENT
  Age: 61 Year
  Sex: Female

DRUGS (2)
  1. ABILIFY [Suspect]
     Indication: ANXIETY
     Dosage: DOSE REDUCED TO 2-3RD OF 5MG TAB(AUG/SEP2010) AND TOOK 1/2TAB ONE DAY ALTER WITH 1TAB NEXT DAY.
     Dates: start: 20091101
  2. ABILIFY [Suspect]
     Indication: DEPRESSION
     Dosage: DOSE REDUCED TO 2-3RD OF 5MG TAB(AUG/SEP2010) AND TOOK 1/2TAB ONE DAY ALTER WITH 1TAB NEXT DAY.
     Dates: start: 20091101

REACTIONS (5)
  - DRUG ADMINISTRATION ERROR [None]
  - DRUG EFFECT DECREASED [None]
  - GAIT DISTURBANCE [None]
  - MULTIPLE SCLEROSIS RELAPSE [None]
  - NAUSEA [None]
